FAERS Safety Report 8777843 (Version 1)
Quarter: 2012Q4

REPORT INFORMATION
  Report Type: 
  Country: US (occurrence: US)
  Receive Date: 20120912
  Receipt Date: 20120912
  Transmission Date: 20130627
  Serious: No
  Sender: FDA-Public Use
  Company Number: US-VERTEX PHARMACEUTICAL INC.-AE-2012-003862

PATIENT
  Age: 52 Year
  Sex: Male
  Weight: 77.5 kg

DRUGS (10)
  1. INCIVEK [Suspect]
     Indication: HEPATITIS C
     Route: 048
     Dates: start: 20120313, end: 20120317
  2. INCIVEK [Suspect]
     Route: 048
     Dates: start: 20120402, end: 20120604
  3. PEGASYS [Concomitant]
     Indication: HEPATITIS C
     Route: 058
     Dates: start: 20120313, end: 20120317
  4. PEGASYS [Concomitant]
     Route: 058
     Dates: start: 20120402
  5. COPEGUS [Concomitant]
     Indication: HEPATITIS C
     Route: 048
     Dates: start: 20120313, end: 20120317
  6. COPEGUS [Concomitant]
     Route: 048
     Dates: start: 20120402
  7. XANAX [Concomitant]
     Indication: SLEEP DISORDER
  8. SOMA [Concomitant]
     Indication: SLEEP DISORDER
     Route: 048
  9. OXYCODONE [Concomitant]
     Indication: BACK PAIN
     Route: 048
  10. EUCERIN CREAM [Concomitant]
     Indication: PRURITUS
     Route: 061

REACTIONS (8)
  - Drug dose omission [Recovered/Resolved]
  - Insomnia [Not Recovered/Not Resolved]
  - Emotional disorder [Unknown]
  - Oedema peripheral [Unknown]
  - Rash generalised [Recovered/Resolved]
  - Pruritus [Not Recovered/Not Resolved]
  - Vomiting [Not Recovered/Not Resolved]
  - Nausea [Not Recovered/Not Resolved]
